FAERS Safety Report 18362377 (Version 6)
Quarter: 2022Q2

REPORT INFORMATION
  Report Type: Spontaneous
  Country: BR (occurrence: BR)
  Receive Date: 20201008
  Receipt Date: 20220418
  Transmission Date: 20220720
  Serious: Yes (Other)
  Sender: FDA-Public Use
  Company Number: BR-PFIZER INC-2020253897

PATIENT
  Age: 12 Year
  Sex: Male

DRUGS (1)
  1. GENOTROPIN [Suspect]
     Active Substance: SOMATROPIN
     Dosage: UNK
     Dates: start: 201911, end: 202009

REACTIONS (5)
  - Tachyarrhythmia [Unknown]
  - Extrasystoles [Unknown]
  - Angina pectoris [Unknown]
  - Dyspnoea [Unknown]
  - Injection site pain [Recovered/Resolved]
